FAERS Safety Report 18768216 (Version 1)
Quarter: 2021Q1

REPORT INFORMATION
  Report Type: Spontaneous
  Country: US (occurrence: US)
  Receive Date: 20210120
  Receipt Date: 20210120
  Transmission Date: 20210419
  Serious: Yes (Death)
  Sender: FDA-Public Use
  Company Number: None

PATIENT
  Age: 65 Year
  Sex: Female

DRUGS (11)
  1. TORSEMIDE. [Concomitant]
     Active Substance: TORSEMIDE
  2. ALLOPURIONOL [Concomitant]
  3. SPIRONOLACTONE. [Concomitant]
     Active Substance: SPIRONOLACTONE
  4. WARFARIN [Concomitant]
     Active Substance: WARFARIN
  5. COLCHICINE. [Concomitant]
     Active Substance: COLCHICINE
  6. POTASSIUM CHLORIDE. [Concomitant]
     Active Substance: POTASSIUM CHLORIDE
  7. ADEMPAS [Concomitant]
     Active Substance: RIOCIGUAT
  8. VENTOLIN HFA [Concomitant]
     Active Substance: ALBUTEROL SULFATE
  9. METOPROLOL. [Concomitant]
     Active Substance: METOPROLOL
  10. OPSUMIT [Suspect]
     Active Substance: MACITENTAN
     Indication: PULMONARY HYPERTENSION
     Route: 048
     Dates: start: 20171211, end: 202012
  11. OPSUMIT [Concomitant]
     Active Substance: MACITENTAN

REACTIONS (15)
  - Shock [None]
  - Aspiration [None]
  - Vomiting [None]
  - Glycosylated haemoglobin increased [None]
  - Nausea [None]
  - Fatigue [None]
  - Atrial fibrillation [None]
  - Acute kidney injury [None]
  - Diabetic ketoacidosis [None]
  - Abdominal distension [None]
  - Haematemesis [None]
  - Ageusia [None]
  - Ileus [None]
  - Hypotension [None]
  - Sepsis [None]

NARRATIVE: CASE EVENT DATE: 20201210
